FAERS Safety Report 8517127-5 (Version None)
Quarter: 2012Q3

REPORT INFORMATION
  Report Type: 
  Country: None (occurrence: None)
  Receive Date: 20120718
  Receipt Date: 20120706
  Transmission Date: 20120928
  Serious: Yes (Life-Threatening, Hospitalization)
  Sender: FDA-Public Use
  Company Number: FR-BRISTOL-MYERS SQUIBB COMPANY-16631624

PATIENT
  Age: 58 Year
  Sex: Female
  Weight: 68 kg

DRUGS (11)
  1. LEVOTHYROXINE SODIUM [Concomitant]
     Route: 048
  2. FLECAINIDE ACETATE [Concomitant]
     Dosage: FLECAINE LP CAPS
     Route: 048
  3. BACTRIM DS [Concomitant]
     Route: 048
     Dates: start: 20120303, end: 20120311
  4. IRBESARTAN AND HYDROCHLOROTHIAZIDE [Suspect]
     Indication: HYPERTENSION
     Dosage: 1DF=300/12.5MG,REST:19MAR12. SEVERAL YEARS
     Route: 048
     Dates: start: 20110401
  5. FURADANTIN [Concomitant]
     Route: 048
     Dates: start: 20120315, end: 20120330
  6. BISOPROLOL FUMARATE [Concomitant]
     Dosage: BISOPROLOL 10 MG
     Route: 048
  7. ASPIRIN [Concomitant]
     Dosage: ORAL POWDER
     Route: 048
  8. NOROXIN [Concomitant]
     Dosage: NOROXINE 400
     Route: 048
     Dates: start: 20120301, end: 20120302
  9. AMLODIPINE BESYLATE [Concomitant]
     Route: 048
  10. ACETAMINOPHEN [Concomitant]
     Dosage: 500 MG CAPSULE
     Route: 048
  11. CIPROFLOXACIN HYDROCHLORIDE [Concomitant]
     Dosage: CIFLOX 500
     Route: 048
     Dates: start: 20120405, end: 20120419

REACTIONS (2)
  - TOXIC SKIN ERUPTION [None]
  - THROMBOCYTOPENIC PURPURA [None]
